FAERS Safety Report 7817252-8 (Version None)
Quarter: 2011Q4

REPORT INFORMATION
  Report Type: 
  Country: None (occurrence: None)
  Receive Date: 20111017
  Receipt Date: 20111013
  Transmission Date: 20120403
  Serious: Yes (Death, Hospitalization)
  Sender: FDA-Public Use
  Company Number: PHFR2011GB02822

PATIENT
  Sex: Female

DRUGS (8)
  1. PROMETHAZINE [Concomitant]
     Indication: SCHIZOPHRENIA
     Dosage: 50 MG/DAY
     Route: 048
  2. LANSOPRAZOLE [Concomitant]
     Dosage: 30 MG/DAY
     Route: 048
  3. ACETAMINOPHEN [Concomitant]
     Dosage: 1000 MG/DAY
     Route: 048
  4. ZUCLOPENTHIXOL [Concomitant]
     Indication: SCHIZOPHRENIA
     Dosage: 50 MG/DAY
     Route: 048
  5. CLOZARIL [Suspect]
     Indication: SCHIZOPHRENIA
     Dosage: 750 MG/DAY
     Route: 048
     Dates: start: 20090529
  6. PROCYCLIDINE HYDROCHLORIDE 2MG TAB [Concomitant]
     Indication: EXTRAPYRAMIDAL DISORDER
     Dosage: 20 MG, UNK
     Route: 048
  7. CLOZARIL [Suspect]
     Dosage: 300 MG, DAILY
     Route: 048
  8. DEPAKOTE [Concomitant]
     Indication: SCHIZOPHRENIA
     Dosage: 2000 MG/DAY
     Route: 048

REACTIONS (7)
  - FALL [None]
  - HEAD INJURY [None]
  - LUNG ADENOCARCINOMA [None]
  - LUNG CANCER METASTATIC [None]
  - HAEMOGLOBIN DECREASED [None]
  - URINARY TRACT INFECTION [None]
  - HAEMORRHAGE [None]
